FAERS Safety Report 8934586 (Version 2)
Quarter: 2013Q1

REPORT INFORMATION
  Report Type: Spontaneous
  Country: JP (occurrence: JP)
  Receive Date: 20121129
  Receipt Date: 20130204
  Transmission Date: 20140127
  Serious: Yes (Hospitalization, Disabling, Other)
  Sender: FDA-Public Use
  Company Number: JP-PFIZER INC-2012220547

PATIENT
  Age: 64 Year
  Sex: Male
  Weight: 48.5 kg

DRUGS (8)
  1. SUTENT [Suspect]
     Indication: GASTROINTESTINAL STROMAL TUMOUR
     Dosage: 50 MG, 1X/DAY
     Route: 048
     Dates: start: 20111028, end: 20111113
  2. SUTENT [Suspect]
     Dosage: 37.5 MG, 1X/DAY
     Route: 048
     Dates: start: 20111203, end: 20120905
  3. TAKEPRON [Concomitant]
     Indication: GASTROOESOPHAGEAL REFLUX DISEASE
     Dosage: 1.5 MG, 1X/DAY
     Route: 048
     Dates: start: 20110304
  4. EXCELASE [Concomitant]
     Indication: DYSPEPSIA
     Dosage: 1 DF, 3X/DAY
     Route: 048
     Dates: start: 20110304
  5. MIYA-BM [Concomitant]
     Indication: DYSPEPSIA
     Dosage: 1.0 G, 3X/DAY
     Route: 048
     Dates: start: 20110304
  6. PURSENNID [Concomitant]
     Indication: CONSTIPATION
     Dosage: 12 MG, 1X/DAY
     Route: 048
     Dates: start: 20110304
  7. BLOPRESS [Concomitant]
     Indication: HYPERTENSION
     Dosage: 8 MG, 1X/DAY
     Route: 048
     Dates: start: 20111108, end: 20121004
  8. NORVASC [Concomitant]
     Indication: HYPERTENSION
     Dosage: 5 MG, 1X/DAY
     Route: 048
     Dates: start: 20120329, end: 20121004

REACTIONS (1)
  - Renal impairment [Not Recovered/Not Resolved]
